FAERS Safety Report 22023641 (Version 1)
Quarter: 2023Q1

REPORT INFORMATION
  Report Type: Spontaneous
  Country: US (occurrence: US)
  Receive Date: 20230223
  Receipt Date: 20230223
  Transmission Date: 20230418
  Serious: Yes (Hospitalization)
  Sender: FDA-Public Use
  Company Number: US-drreddys-LIT/USA/23/0161317

PATIENT
  Age: 8 Decade
  Sex: Female

DRUGS (1)
  1. MINOCYCLINE HYDROCHLORIDE [Suspect]
     Active Substance: MINOCYCLINE HYDROCHLORIDE
     Indication: Acne
     Dosage: INTERMITTENTLY FOR 4 YEARS

REACTIONS (3)
  - Papillary thyroid cancer [Unknown]
  - Chondropathy [Unknown]
  - Thyroid disorder [Unknown]
